FAERS Safety Report 7637610-4 (Version None)
Quarter: 2011Q3

REPORT INFORMATION
  Report Type: 
  Country: None (occurrence: None)
  Receive Date: 20110726
  Receipt Date: 20110720
  Transmission Date: 20111222
  Serious: Yes (Disabling)
  Sender: FDA-Public Use
  Company Number: PHHY2011GB65082

PATIENT
  Age: 68 Year
  Sex: Male

DRUGS (6)
  1. ACETAMINOPHEN AND CODEINE PHOSPHATE [Concomitant]
     Dosage: UNK
     Route: 048
     Dates: start: 20040729
  2. NAPROXEN [Concomitant]
     Indication: NECK PAIN
     Dosage: 375 MG, TID
     Route: 048
     Dates: start: 20041004
  3. ZOPICLONE [Concomitant]
     Dosage: 3.75 MG, UNK
     Dates: start: 20000531
  4. ALENDRONIC ACID [Suspect]
     Indication: OSTEOPOROSIS PROPHYLAXIS
     Dosage: 70 MG, QW
     Route: 048
     Dates: start: 20080331, end: 20110222
  5. PREDNISOLONE [Concomitant]
     Dosage: 15 MG, UNK
     Route: 048
     Dates: start: 20080311
  6. CHLORPHENIRAMINE MALEATE [Concomitant]
     Dosage: 8 MG, TID
     Dates: start: 20040126

REACTIONS (3)
  - MYALGIA [None]
  - ASTHENIA [None]
  - EXTRASYSTOLES [None]
